FAERS Safety Report 5789350-4 (Version None)
Quarter: 2008Q2

REPORT INFORMATION
  Report Type: 
  Country: None (occurrence: None)
  Receive Date: 20080626
  Receipt Date: 20080623
  Transmission Date: 20081010
  Serious: Yes (Hospitalization)
  Sender: FDA-Public Use
  Company Number: US-TEVA-173251USA

PATIENT
  Age: 60 Year
  Sex: Male

DRUGS (1)
  1. LEUPROLIDE ACETATE 1 MG/0.2 ML; 6 ML MDV [Suspect]
     Indication: PROSTATE CANCER
     Route: 058

REACTIONS (2)
  - PITUITARY HAEMORRHAGE [None]
  - PITUITARY TUMOUR BENIGN [None]
